FAERS Safety Report 7939671-1 (Version None)
Quarter: 2011Q4

REPORT INFORMATION
  Report Type: 
  Country: None (occurrence: None)
  Receive Date: 20111125
  Receipt Date: 20111116
  Transmission Date: 20120403
  Serious: No
  Sender: FDA-Public Use
  Company Number: PHHY2011DE102157

PATIENT
  Age: 59 Year

DRUGS (3)
  1. TASIGNA [Suspect]
     Dosage: 2 DF, QD
     Route: 048
     Dates: start: 20110801
  2. DASATINIB [Concomitant]
     Dates: start: 20110301
  3. GLEEVEC [Suspect]
     Indication: CHRONIC MYELOID LEUKAEMIA
     Dosage: 400 MG, DAILY
     Dates: start: 20100701, end: 20101101

REACTIONS (2)
  - RASH [None]
  - THROMBOCYTOPENIA [None]
